FAERS Safety Report 9756049 (Version 1)
Quarter: 2013Q4

REPORT INFORMATION
  Report Type: Spontaneous
  Country: US (occurrence: US)
  Receive Date: 20131213
  Receipt Date: 20131213
  Transmission Date: 20140711
  Serious: No
  Sender: FDA-Public Use
  Company Number: US-GLAXOSMITHKLINE-A1028764A

PATIENT
  Age: 50 Year
  Sex: Female

DRUGS (1)
  1. SIMPLY RIGHT CLEAR 21 MG [Suspect]
     Indication: EX-TOBACCO USER
     Route: 062

REACTIONS (6)
  - Application site pruritus [Not Recovered/Not Resolved]
  - Application site erythema [Not Recovered/Not Resolved]
  - Application site papules [Not Recovered/Not Resolved]
  - Application site swelling [Not Recovered/Not Resolved]
  - Hypersensitivity [Not Recovered/Not Resolved]
  - Application site urticaria [Not Recovered/Not Resolved]
